FAERS Safety Report 9338375 (Version 1)
Quarter: 2013Q2

REPORT INFORMATION
  Report Type: Spontaneous
  Country: US (occurrence: US)
  Receive Date: 20130610
  Receipt Date: 20130610
  Transmission Date: 20140414
  Serious: No
  Sender: FDA-Public Use
  Company Number: US-PFIZER INC-2013170438

PATIENT
  Sex: Female

DRUGS (1)
  1. LEVOXYL [Suspect]
     Indication: HYPOTHYROIDISM
     Dosage: 0.112 UG, 1X/DAY
     Route: 048
     Dates: end: 20130604

REACTIONS (3)
  - Product taste abnormal [Unknown]
  - Product quality issue [Unknown]
  - Drug ineffective [Unknown]
